FAERS Safety Report 9614637 (Version 5)
Quarter: 2014Q2

REPORT INFORMATION
  Report Type: Report from Study
  Country: CN (occurrence: CN)
  Receive Date: 20131011
  Receipt Date: 20140512
  Transmission Date: 20141212
  Serious: Yes (Hospitalization)
  Sender: FDA-Public Use
  Company Number: CN-ROCHE-1287509

PATIENT
  Age: 46 Year
  Sex: Male
  Weight: 70 kg

DRUGS (2)
  1. AVASTIN [Suspect]
     Indication: RECTAL CANCER
     Route: 042
     Dates: start: 20120904, end: 201309
  2. AVASTIN [Suspect]
     Route: 042
     Dates: start: 20130108

REACTIONS (7)
  - Intestinal perforation [Recovered/Resolved]
  - Gastrointestinal haemorrhage [Recovered/Resolved]
  - Pyrexia [Recovering/Resolving]
  - Protein urine present [Unknown]
  - Renal disorder [Recovering/Resolving]
  - Blood albumin decreased [Recovering/Resolving]
  - Blood urea increased [Recovering/Resolving]
